FAERS Safety Report 17957630 (Version 2)
Quarter: 2020Q3

REPORT INFORMATION
  Report Type: Spontaneous
  Country: US (occurrence: US)
  Receive Date: 20200629
  Receipt Date: 20200701
  Transmission Date: 20201103
  Serious: No
  Sender: FDA-Public Use
  Company Number: US-ASTRAZENECA-2020SE73557

PATIENT
  Sex: Male
  Weight: 83 kg

DRUGS (1)
  1. BYDUREON BCISE [Suspect]
     Active Substance: EXENATIDE
     Indication: DIABETES MELLITUS
     Route: 058
     Dates: start: 20200603

REACTIONS (3)
  - Injection site pain [Recovered/Resolved]
  - Drug dose omission by device [Recovered/Resolved]
  - Device delivery system issue [Recovered/Resolved]
